FAERS Safety Report 4785092-2 (Version None)
Quarter: 2005Q3

REPORT INFORMATION
  Report Type: 
  Country: None (occurrence: None)
  Receive Date: 20050928
  Receipt Date: 20050916
  Transmission Date: 20060218
  Serious: Yes (Other)
  Sender: FDA-Public Use
  Company Number: 2005129977

PATIENT
  Age: 29 Year
  Sex: Female
  Weight: 49 kg

DRUGS (6)
  1. CELEBREX [Suspect]
     Indication: BACK PAIN
     Dosage: 200 MG (200 MG, 1 IN 1 D), ORAL
     Route: 048
     Dates: start: 20030601, end: 20030601
  2. FLECTOR EP GEL (DICLOFENAC EPOLAMINUM [Concomitant]
  3. DICLOFENAC SODIUM [Concomitant]
  4. TOLPERISONE (TOLPERISONE) [Concomitant]
  5. CLONAZEPAM [Concomitant]
  6. PAROXETINE HCL [Concomitant]

REACTIONS (3)
  - CEREBRAL INFARCTION [None]
  - DIPLOPIA [None]
  - VISUAL FIELD DEFECT [None]
